FAERS Safety Report 19773242 (Version 1)
Quarter: 2021Q3

REPORT INFORMATION
  Report Type: Spontaneous
  Country: ES (occurrence: ES)
  Receive Date: 20210901
  Receipt Date: 20210901
  Transmission Date: 20211014
  Serious: Yes (Death, Hospitalization, Other)
  Sender: FDA-Public Use
  Company Number: ES-AMGEN-ESPSP2021132492

PATIENT

DRUGS (1)
  1. ADALIMUMAB [Suspect]
     Active Substance: ADALIMUMAB
     Indication: PRODUCT USED FOR UNKNOWN INDICATION
     Dosage: UNK
     Route: 065

REACTIONS (13)
  - Osteomyelitis [Unknown]
  - Tuberculosis [Unknown]
  - Drug ineffective [Unknown]
  - Urinary tract infection [Unknown]
  - Metabolic disorder [Fatal]
  - Abdominal infection [Unknown]
  - Endocrine disorder [Fatal]
  - Infection [Fatal]
  - Soft tissue infection [Unknown]
  - Cardiac failure [Unknown]
  - Respiratory tract infection [Unknown]
  - Disease progression [Fatal]
  - Neoplasm malignant [Fatal]
